FAERS Safety Report 5652131-6 (Version None)
Quarter: 2008Q1

REPORT INFORMATION
  Report Type: 
  Country: None (occurrence: None)
  Receive Date: 20080304
  Receipt Date: 20080225
  Transmission Date: 20080703
  Serious: Yes (Hospitalization)
  Sender: FDA-Public Use
  Company Number: E2020-02344-SPO-JP

PATIENT
  Age: 84 Year
  Sex: Female

DRUGS (10)
  1. ARICEPT [Suspect]
     Indication: DEMENTIA ALZHEIMER'S TYPE
     Dosage: 5 MG, 1 IN 1 D, ORAL
     Route: 048
     Dates: start: 20060221, end: 20080114
  2. INDERAL [Suspect]
     Indication: HYPERTENSION
     Dosage: 10 MG, 1 IN 1 D, ORAL
     Route: 048
     Dates: start: 20060221, end: 20080114
  3. LOSARTAN POTASSIUM [Concomitant]
  4. ALFAROL (ALFACALCIDOL) [Concomitant]
  5. GASCON (DIMETICONE) [Concomitant]
  6. BIOFERMIN (BIOFERMIN) [Concomitant]
  7. MAGNESIUM OXIDE (MAGNESIUM OXIDE) [Concomitant]
  8. URSO 250 [Concomitant]
  9. EXCELASE (EXCELASE) [Concomitant]
  10. SAHNE (RETINOL) [Concomitant]

REACTIONS (2)
  - FALL [None]
  - SICK SINUS SYNDROME [None]
